FAERS Safety Report 14900046 (Version 2)
Quarter: 2018Q2

REPORT INFORMATION
  Report Type: Spontaneous
  Country: DE (occurrence: DE)
  Receive Date: 20180516
  Receipt Date: 20180518
  Transmission Date: 20180711
  Serious: Yes (Other)
  Sender: FDA-Public Use
  Company Number: DE-009507513-1805DEU005107

PATIENT
  Age: 86 Year
  Sex: Male

DRUGS (3)
  1. PEMBROLIZUMAB. [Suspect]
     Active Substance: PEMBROLIZUMAB
     Indication: NON-SMALL CELL LUNG CANCER
     Dosage: 200 MG/DAY, EVERY 3 WEEKS
     Dates: start: 20170307
  2. ASPIRIN. [Concomitant]
     Active Substance: ASPIRIN
     Dosage: UNK
     Route: 048
  3. EPINEPHRINE. [Concomitant]
     Active Substance: EPINEPHRINE
     Dosage: INHALATION

REACTIONS (7)
  - Bladder transitional cell carcinoma [Unknown]
  - Urinary tract infection enterococcal [Unknown]
  - Drug effect incomplete [Unknown]
  - Urinary retention [Unknown]
  - Drug ineffective [Unknown]
  - Urinary tract infection pseudomonal [Unknown]
  - Benign prostatic hyperplasia [Unknown]

NARRATIVE: CASE EVENT DATE: 2017
